FAERS Safety Report 19892573 (Version 7)
Quarter: 2022Q3

REPORT INFORMATION
  Report Type: Report from Study
  Country: US (occurrence: US)
  Receive Date: 20210929
  Receipt Date: 20220915
  Transmission Date: 20221027
  Serious: No
  Sender: FDA-Public Use
  Company Number: US-NOVARTISTESTPH-NVSC2021US220725

PATIENT
  Sex: Male

DRUGS (2)
  1. ENTRESTO [Suspect]
     Active Substance: SACUBITRIL\VALSARTAN
     Indication: Product used for unknown indication
     Dosage: 0.5 DOSAGE FORM, BID (49/51 MG)
     Route: 048
     Dates: start: 2021
  2. ENTRESTO [Suspect]
     Active Substance: SACUBITRIL\VALSARTAN
     Dosage: 0.5 DOSAGE FORM, BID (97/103 MG)
     Route: 048
     Dates: start: 202108

REACTIONS (15)
  - Blood potassium increased [Recovering/Resolving]
  - Head discomfort [Unknown]
  - Nasopharyngitis [Recovering/Resolving]
  - Sleep apnoea syndrome [Unknown]
  - Decreased activity [Unknown]
  - Weight increased [Recovering/Resolving]
  - Dizziness postural [Unknown]
  - Glycosylated haemoglobin increased [Not Recovered/Not Resolved]
  - Cough [Recovering/Resolving]
  - Dizziness [Unknown]
  - Vertigo [Unknown]
  - Asthenia [Unknown]
  - Blood testosterone increased [Recovering/Resolving]
  - Wrong technique in product usage process [Unknown]
  - Product dose omission issue [Unknown]
